FAERS Safety Report 8824093 (Version 2)
Quarter: 2014Q3

REPORT INFORMATION
  Report Type: Report from Study
  Country: US (occurrence: US)
  Receive Date: 20121003
  Receipt Date: 20140910
  Transmission Date: 20150326
  Serious: Yes (Other)
  Sender: FDA-Public Use
  Company Number: US-ROCHE-1133609

PATIENT
  Sex: Male

DRUGS (1)
  1. RITUXAN [Suspect]
     Active Substance: RITUXIMAB
     Indication: CHRONIC LYMPHOCYTIC LEUKAEMIA
     Dosage: VIAL SIZE: 100 MG?- SUBSEQUENT DOSES WERE ADMINISTERED ON 01/APR/1999, 07/APR/1999, 14/APR/1999 AND
     Route: 042
     Dates: start: 19990331

REACTIONS (8)
  - Chills [Unknown]
  - Fatigue [Unknown]
  - Cough [Unknown]
  - Hypersplenism [Unknown]
  - Anaemia [Unknown]
  - Influenza like illness [Unknown]
  - Thrombocytopenia [Unknown]
  - Myalgia [Unknown]
